FAERS Safety Report 16766555 (Version 1)
Quarter: 2019Q4

REPORT INFORMATION
  Report Type: Spontaneous
  Country: US (occurrence: US)
  Receive Date: 20190831
  Receipt Date: 20190831
  Transmission Date: 20200122
  Serious: No
  Sender: FDA-Public Use
  Company Number: None

PATIENT
  Age: 57 Year
  Sex: Female
  Weight: 84.15 kg

DRUGS (1)
  1. MYRBETRIQ [Suspect]
     Active Substance: MIRABEGRON
     Indication: HYPERTONIC BLADDER
     Dosage: ?          QUANTITY:1 TABLET(S);?
     Route: 048
     Dates: start: 20190501, end: 20190817

REACTIONS (5)
  - Protein urine [None]
  - Drug hypersensitivity [None]
  - Blood pressure increased [None]
  - Polyuria [None]
  - Renal function test abnormal [None]

NARRATIVE: CASE EVENT DATE: 20190816
